FAERS Safety Report 23028500 (Version 2)
Quarter: 2023Q4

REPORT INFORMATION
  Report Type: Spontaneous
  Country: US (occurrence: US)
  Receive Date: 20231004
  Receipt Date: 20231113
  Transmission Date: 20240110
  Serious: Yes (Other)
  Sender: FDA-Public Use
  Company Number: US-Blueprint Medicines Corporation-1506

PATIENT
  Sex: Male

DRUGS (1)
  1. AYVAKIT [Suspect]
     Active Substance: AVAPRITINIB
     Indication: Gastrointestinal stromal tumour
     Route: 065
     Dates: start: 20230525

REACTIONS (6)
  - Pericardial effusion [Unknown]
  - Laboratory test abnormal [Unknown]
  - Weight decreased [Unknown]
  - Periorbital oedema [Unknown]
  - Eyelid oedema [Unknown]
  - Sciatica [Unknown]
